FAERS Safety Report 18439114 (Version 1)
Quarter: 2020Q4

REPORT INFORMATION
  Report Type: Spontaneous
  Country: BR (occurrence: BR)
  Receive Date: 20201028
  Receipt Date: 20201028
  Transmission Date: 20210114
  Serious: No
  Sender: FDA-Public Use
  Company Number: BR-TOLMAR, INC.-20BR023386

PATIENT
  Sex: Male
  Weight: 112 kg

DRUGS (5)
  1. GLIFAGE [Concomitant]
     Active Substance: METFORMIN HYDROCHLORIDE
     Indication: DIABETES MELLITUS
     Dosage: 2 DOSAGE FORM, QD
     Route: 048
     Dates: start: 2014
  2. ACETYLSALICYLIC ACID [Concomitant]
     Active Substance: ASPIRIN
     Indication: COAGULATION TIME PROLONGED
     Dosage: 100 MG, QD
     Route: 048
     Dates: start: 2014
  3. RADIOTHERAPY [Concomitant]
     Active Substance: RADIATION THERAPY
     Indication: PROSTATE CANCER
  4. ELIGARD [Suspect]
     Active Substance: LEUPROLIDE ACETATE
     Indication: PROSTATE CANCER
     Dosage: UNK, Q 1 MONTH
     Route: 058
     Dates: start: 20191010, end: 20200305
  5. NAPRIX [Concomitant]
     Active Substance: RAMIPRIL
     Indication: HYPERTENSION
     Dosage: 1 DOSAGE FORM, QD
     Route: 048
     Dates: start: 2015

REACTIONS (8)
  - Headache [Unknown]
  - Muscle fatigue [Not Recovered/Not Resolved]
  - Dysuria [Not Recovered/Not Resolved]
  - Penile size reduced [Not Recovered/Not Resolved]
  - Muscle spasms [Recovered/Resolved]
  - Apathy [Not Recovered/Not Resolved]
  - Testicular atrophy [Not Recovered/Not Resolved]
  - Hot flush [Not Recovered/Not Resolved]

NARRATIVE: CASE EVENT DATE: 20191010
